FAERS Safety Report 12104517 (Version 1)
Quarter: 2016Q1

REPORT INFORMATION
  Report Type: Spontaneous
  Country: ZA (occurrence: ZA)
  Receive Date: 20160223
  Receipt Date: 20160223
  Transmission Date: 20160526
  Serious: Yes (Hospitalization)
  Sender: FDA-Public Use
  Company Number: ZA-SA-2016SA032641

PATIENT
  Age: 4 Year
  Sex: Female

DRUGS (25)
  1. RIFAMPICIN [Suspect]
     Active Substance: RIFAMPIN
     Indication: MENINGITIS TUBERCULOUS
     Route: 065
     Dates: start: 201111, end: 201112
  2. LEVOFLOXACIN. [Suspect]
     Active Substance: LEVOFLOXACIN
     Indication: MENINGITIS TUBERCULOUS
     Route: 065
     Dates: start: 201211, end: 201403
  3. PARA-AMINOSALICYLIC ACID [Suspect]
     Active Substance: AMINOSALICYLIC ACID
     Indication: MENINGITIS TUBERCULOUS
     Route: 065
     Dates: start: 201209, end: 201211
  4. ETHIONAMIDE [Suspect]
     Active Substance: ETHIONAMIDE
     Indication: MENINGITIS TUBERCULOUS
     Route: 065
     Dates: start: 201111, end: 201112
  5. ETHIONAMIDE [Suspect]
     Active Substance: ETHIONAMIDE
     Indication: MENINGITIS TUBERCULOUS
     Route: 065
     Dates: start: 201208, end: 201211
  6. RIFAMPICIN [Suspect]
     Active Substance: RIFAMPIN
     Indication: MENINGITIS TUBERCULOUS
     Route: 065
     Dates: start: 201202, end: 201206
  7. PYRAZINAMIDE. [Suspect]
     Active Substance: PYRAZINAMIDE
     Indication: MENINGITIS TUBERCULOUS
     Route: 065
     Dates: start: 201208, end: 201211
  8. OFLOXACIN. [Suspect]
     Active Substance: OFLOXACIN
     Indication: MENINGITIS TUBERCULOUS
     Route: 065
     Dates: start: 201201, end: 201201
  9. LINEZOLID. [Suspect]
     Active Substance: LINEZOLID
     Indication: MENINGITIS TUBERCULOUS
     Route: 065
     Dates: start: 201210, end: 201403
  10. PARA-AMINOSALICYLIC ACID [Suspect]
     Active Substance: AMINOSALICYLIC ACID
     Indication: MENINGITIS TUBERCULOUS
     Route: 065
     Dates: start: 201301, end: 201403
  11. TERIZIDONE [Suspect]
     Active Substance: TERIZIDONE
     Indication: MENINGITIS TUBERCULOUS
     Route: 065
     Dates: start: 201201, end: 201403
  12. PREDNISOLONE. [Concomitant]
     Active Substance: PREDNISOLONE
  13. ETHIONAMIDE [Suspect]
     Active Substance: ETHIONAMIDE
     Indication: MENINGITIS TUBERCULOUS
     Route: 065
     Dates: start: 201301, end: 201403
  14. ETHAMBUTOL [Suspect]
     Active Substance: ETHAMBUTOL HYDROCHLORIDE
     Indication: MENINGITIS TUBERCULOUS
     Route: 065
     Dates: start: 201208, end: 201211
  15. ISONIAZID. [Suspect]
     Active Substance: ISONIAZID
     Indication: MENINGITIS TUBERCULOUS
     Route: 065
     Dates: start: 201111, end: 201112
  16. CAPREOMYCIN [Suspect]
     Active Substance: CAPREOMYCIN
     Indication: MENINGITIS TUBERCULOUS
     Route: 065
     Dates: start: 201210, end: 201306
  17. ETHAMBUTOL [Suspect]
     Active Substance: ETHAMBUTOL HYDROCHLORIDE
     Indication: MENINGITIS TUBERCULOUS
     Route: 065
     Dates: start: 201201, end: 201201
  18. ETHIONAMIDE [Suspect]
     Active Substance: ETHIONAMIDE
     Indication: MENINGITIS TUBERCULOUS
     Route: 065
     Dates: start: 201202, end: 201206
  19. PYRAZINAMIDE. [Suspect]
     Active Substance: PYRAZINAMIDE
     Indication: MENINGITIS TUBERCULOUS
     Route: 065
     Dates: start: 201111, end: 201112
  20. AMIKACIN [Suspect]
     Active Substance: AMIKACIN
     Indication: MENINGITIS TUBERCULOUS
     Route: 065
     Dates: start: 201201, end: 201201
  21. AMIKACIN [Suspect]
     Active Substance: AMIKACIN
     Indication: MENINGITIS TUBERCULOUS
     Route: 065
     Dates: start: 201208, end: 201209
  22. PREDNISOLONE. [Concomitant]
     Active Substance: PREDNISOLONE
     Dosage: TAPERED
  23. ISONIAZID. [Suspect]
     Active Substance: ISONIAZID
     Indication: MENINGITIS TUBERCULOUS
     Route: 065
     Dates: start: 201202, end: 201206
  24. OFLOXACIN. [Suspect]
     Active Substance: OFLOXACIN
     Indication: MENINGITIS TUBERCULOUS
     Route: 065
     Dates: start: 201208, end: 201210
  25. CLOFAZIMINE [Suspect]
     Active Substance: CLOFAZIMINE
     Indication: MENINGITIS TUBERCULOUS
     Route: 065
     Dates: start: 201210, end: 201403

REACTIONS (8)
  - Pallor [Recovering/Resolving]
  - Abdominal distension [Recovering/Resolving]
  - Hepatosplenomegaly [Recovering/Resolving]
  - Hypothyroidism [Recovered/Resolved]
  - Gastrointestinal disorder [Recovered/Resolved]
  - Drug-induced liver injury [Recovering/Resolving]
  - Alanine aminotransferase increased [Recovered/Resolved]
  - Anaemia [Recovered/Resolved]
